FAERS Safety Report 26086562 (Version 2)
Quarter: 2025Q4

REPORT INFORMATION
  Report Type: Spontaneous
  Country: JP (occurrence: JP)
  Receive Date: 20251125
  Receipt Date: 20251209
  Transmission Date: 20260118
  Serious: Yes (Death, Other)
  Sender: GILEAD
  Company Number: JP-GILEAD-2025-0737726

PATIENT
  Age: 8 Decade
  Sex: Male

DRUGS (6)
  1. VEMLIDY [Suspect]
     Active Substance: TENOFOVIR ALAFENAMIDE FUMARATE
     Indication: Chronic hepatitis B
     Dosage: UNK
     Route: 065
     Dates: start: 202403
  2. ENTECAVIR [Concomitant]
     Active Substance: ENTECAVIR
     Indication: Acute hepatitis B
     Dosage: UNK
     Route: 048
     Dates: start: 202402
  3. ENTECAVIR [Concomitant]
     Active Substance: ENTECAVIR
     Dosage: AT DOUBLE THE USUAL DOSE
     Route: 048
     Dates: start: 20240228
  4. METHYLPREDNISOLONE [Concomitant]
     Active Substance: METHYLPREDNISOLONE
     Dosage: UNK
     Dates: start: 202402
  5. FRESH FROZEN PLASMA [BLOOD PLASMA] [Concomitant]
     Dosage: UNK
     Dates: start: 202403
  6. FRESH FROZEN PLASMA [BLOOD PLASMA] [Concomitant]
     Dosage: UNK
     Dates: start: 202403

REACTIONS (2)
  - Death [Fatal]
  - Coma [Unknown]

NARRATIVE: CASE EVENT DATE: 20240301
